FAERS Safety Report 8154769-3 (Version None)
Quarter: 2012Q1

REPORT INFORMATION
  Report Type: 
  Country: None (occurrence: None)
  Receive Date: 20120221
  Receipt Date: 20120210
  Transmission Date: 20120608
  Serious: Yes (Hospitalization)
  Sender: FDA-Public Use
  Company Number: PHFR2011GB04779

PATIENT
  Sex: Male

DRUGS (3)
  1. CLOZARIL [Suspect]
     Indication: SCHIZOPHRENIA
     Route: 065
     Dates: start: 20100921
  2. CLOZARIL [Suspect]
     Dosage: UNK
     Route: 065
  3. OPIOIDS [Suspect]
     Dosage: UNK
     Route: 065

REACTIONS (1)
  - OVERDOSE [None]
